FAERS Safety Report 7316322-0 (Version None)
Quarter: 2011Q1

REPORT INFORMATION
  Report Type: 
  Country: None (occurrence: None)
  Receive Date: 20110225
  Receipt Date: 20110214
  Transmission Date: 20110831
  Serious: Yes (Hospitalization)
  Sender: FDA-Public Use
  Company Number: US-ALLERGAN-1102145US

PATIENT
  Age: 60 Year
  Sex: Female

DRUGS (4)
  1. LATISSE [Suspect]
     Indication: GROWTH OF EYELASHES
     Dosage: 1 GTT, QHS
     Route: 061
     Dates: start: 20110101, end: 20110210
  2. LATISSE [Suspect]
     Indication: EYELASH DISCOLOURATION
  3. RESTASIS [Concomitant]
  4. EQUATE LUBRICATING AND REWETTING DROPS [Concomitant]

REACTIONS (4)
  - VOMITING [None]
  - RED BLOOD CELLS CSF POSITIVE [None]
  - EYE PAIN [None]
  - NAUSEA [None]
